FAERS Safety Report 10062516 (Version 1)
Quarter: 2014Q2

REPORT INFORMATION
  Report Type: Report from Study
  Country: US (occurrence: US)
  Receive Date: 20140407
  Receipt Date: 20140407
  Transmission Date: 20141212
  Serious: Yes (Other)
  Sender: FDA-Public Use
  Company Number: US-ACTELION-A-US2014-96850

PATIENT
  Age: 43 Year
  Sex: Female

DRUGS (2)
  1. TRACLEER [Suspect]
     Indication: PRODUCT USED FOR UNKNOWN INDICATION
     Route: 048
  2. ADCIRCA [Concomitant]

REACTIONS (3)
  - Hepatic steatosis [Unknown]
  - Hepatitis [Unknown]
  - Hepatic cirrhosis [Unknown]
